FAERS Safety Report 10145673 (Version 1)
Quarter: 2014Q2

REPORT INFORMATION
  Report Type: Report from Study
  Country: US (occurrence: US)
  Receive Date: 20140501
  Receipt Date: 20140501
  Transmission Date: 20141212
  Serious: No
  Sender: FDA-Public Use
  Company Number: US-ABBVIE-13P-163-1170693-00

PATIENT
  Sex: Female

DRUGS (1)
  1. CREON [Suspect]
     Indication: STEATORRHOEA
     Dosage: WITH MEALS
     Dates: start: 201309

REACTIONS (2)
  - Weight decreased [Not Recovered/Not Resolved]
  - Diarrhoea [Unknown]
